FAERS Safety Report 17707735 (Version 1)
Quarter: 2020Q2

REPORT INFORMATION
  Report Type: Spontaneous
  Country: ES (occurrence: ES)
  Receive Date: 20200424
  Receipt Date: 20200424
  Transmission Date: 20200714
  Serious: Yes (Other)
  Sender: FDA-Public Use
  Company Number: ES-BAUSCH-BL-2020-011783

PATIENT
  Age: 46 Year
  Sex: Male
  Weight: 85 kg

DRUGS (2)
  1. DEXAMETASONA [Suspect]
     Active Substance: DEXAMETHASONE
     Indication: GLIOMA
     Route: 048
     Dates: start: 20200206
  2. PREDNISONA [Suspect]
     Active Substance: PREDNISONE
     Indication: GLIOMA
     Route: 048
     Dates: start: 20200206

REACTIONS (3)
  - Glossitis [Recovering/Resolving]
  - Headache [Recovering/Resolving]
  - Pain [Recovering/Resolving]

NARRATIVE: CASE EVENT DATE: 20200214
